FAERS Safety Report 8121145-9 (Version None)
Quarter: 2011Q4

REPORT INFORMATION
  Report Type: 
  Country: None (occurrence: None)
  Receive Date: 20111227
  Receipt Date: 20110912
  Transmission Date: 20120403
  Serious: No
  Sender: FDA-Public Use
  Company Number: PHEH2011US04337

PATIENT
  Age: 57 Year
  Sex: Female

DRUGS (5)
  1. DEPAKOTE [Concomitant]
  2. GILENYA [Suspect]
     Dosage: 0.5 MG, QD, ORAL
     Route: 048
  3. GEODON [Concomitant]
  4. EFEXOR XR (VENLAFAXINE) [Concomitant]
  5. GILENYA [Suspect]
     Dosage: 0.5 MG, QD, ORAL
     Route: 048

REACTIONS (1)
  - NAUSEA [None]
